FAERS Safety Report 6679965-3 (Version None)
Quarter: 2010Q2

REPORT INFORMATION
  Report Type: 
  Country: None (occurrence: None)
  Receive Date: 20100413
  Receipt Date: 20100409
  Transmission Date: 20101027
  Serious: No
  Sender: FDA-Public Use
  Company Number: US-B.I. PHARMACEUTICALS,INC./RIDGEFIELD-2010-BP-02544BP

PATIENT
  Sex: Male

DRUGS (8)
  1. FLOMAX [Suspect]
     Indication: BENIGN PROSTATIC HYPERPLASIA
     Dosage: 0.4 MG
     Route: 048
     Dates: start: 20100220, end: 20100226
  2. FLOMAX [Suspect]
     Indication: POLLAKIURIA
  3. FLOMAX [Suspect]
     Indication: RESIDUAL URINE
  4. PROPRANOLOL [Concomitant]
     Indication: BLOOD PRESSURE
  5. CAPTOPRIL [Concomitant]
     Indication: BLOOD PRESSURE
  6. DILTIAZEM HCL [Concomitant]
     Indication: BLOOD PRESSURE
  7. HYDROCHLOROTHIAZIDE [Concomitant]
     Indication: DIURETIC THERAPY
  8. ALPRAZOLAM [Concomitant]
     Indication: ANXIETY

REACTIONS (5)
  - BLOOD BLISTER [None]
  - PRURITUS [None]
  - SKIN IRRITATION [None]
  - SKIN ULCER [None]
  - URINARY TRACT INFECTION [None]
